FAERS Safety Report 23907745 (Version 1)
Quarter: 2024Q2

REPORT INFORMATION
  Report Type: Spontaneous
  Country: SK (occurrence: SK)
  Receive Date: 20240528
  Receipt Date: 20240528
  Transmission Date: 20240716
  Serious: Yes (Other)
  Sender: FDA-Public Use
  Company Number: None

PATIENT
  Age: 47 Year
  Sex: Female
  Weight: 80 kg

DRUGS (2)
  1. CAPECITABINE [Suspect]
     Active Substance: CAPECITABINE
     Indication: Colorectal cancer metastatic
     Dosage: ADJUVANT CHEMOTHERAPY . ORAL CAPECITABINE (1000 MG/M2 TWICE PER DAY FOR 14 DAYS EVERY 21 DAYS)
     Route: 048
  2. DEXAMETHASONE [Concomitant]
     Active Substance: DEXAMETHASONE
     Indication: Colorectal cancer metastatic
     Dosage: 4 MG/D?DAILY DOSE: 4 MILLIGRAM
     Dates: start: 202303

REACTIONS (8)
  - Hypertriglyceridaemia [Recovering/Resolving]
  - Hyperchylomicronaemia [Unknown]
  - Nausea [Unknown]
  - Vomiting [Unknown]
  - Dyslipidaemia [Unknown]
  - Decreased appetite [Unknown]
  - Muscle spasms [Unknown]
  - Weight increased [Unknown]
